FAERS Safety Report 8010624-0 (Version None)
Quarter: 2011Q4

REPORT INFORMATION
  Report Type: 
  Country: None (occurrence: None)
  Receive Date: 20111228
  Receipt Date: 20111219
  Transmission Date: 20120403
  Serious: Yes (Death, Other)
  Sender: FDA-Public Use
  Company Number: US-PFIZER INC-2011308710

PATIENT
  Age: 33 Year
  Sex: Female

DRUGS (3)
  1. VENLAFAXINE HCL [Suspect]
     Dosage: UNK
     Route: 048
  2. MERCURIC CYANIDE [Suspect]
     Dosage: UNK
     Route: 048
  3. LORAZEPAM [Suspect]
     Dosage: UNK
     Route: 048

REACTIONS (15)
  - CARDIAC ARREST [None]
  - RESPIRATORY ARREST [None]
  - PO2 DECREASED [None]
  - PULSELESS ELECTRICAL ACTIVITY [None]
  - BLOOD PH DECREASED [None]
  - CHEMICAL BURN OF GASTROINTESTINAL TRACT [None]
  - UNRESPONSIVE TO STIMULI [None]
  - CYANOSIS [None]
  - INTENTIONAL DRUG MISUSE [None]
  - CHEMICAL POISONING [None]
  - PCO2 INCREASED [None]
  - OXYGEN SATURATION DECREASED [None]
  - COMPLETED SUICIDE [None]
  - AGONAL RHYTHM [None]
  - FALL [None]
